FAERS Safety Report 18447906 (Version 2)
Quarter: 2021Q4

REPORT INFORMATION
  Report Type: Spontaneous
  Country: US (occurrence: US)
  Receive Date: 20201030
  Receipt Date: 20211103
  Transmission Date: 20220303
  Serious: No
  Sender: FDA-Public Use
  Company Number: US-UPSHER-SMITH LABORATORIES, LLC-2020USL00465

PATIENT
  Age: 83 Year
  Sex: Female
  Weight: 61.224 kg

DRUGS (6)
  1. JANTOVEN [Suspect]
     Active Substance: WARFARIN SODIUM
     Indication: Pulmonary embolism
     Dosage: 1 MG, 1X/DAY (WITH 3 MG)
     Route: 048
     Dates: start: 20200817
  2. JANTOVEN [Suspect]
     Active Substance: WARFARIN SODIUM
     Indication: Pulmonary embolism
     Dosage: 3 MG, 1X/DAY (WITH 1 MG)
     Route: 048
     Dates: start: 20200817
  3. ATENOLOL [Concomitant]
     Active Substance: ATENOLOL
  4. VITAMIN D3 [Concomitant]
     Active Substance: CHOLECALCIFEROL
  5. VITAMIN B12 [Concomitant]
     Active Substance: CYANOCOBALAMIN
  6. VITAMIN C [Concomitant]
     Active Substance: ASCORBIC ACID

REACTIONS (2)
  - Skin reaction [Not Recovered/Not Resolved]
  - Pruritus [Not Recovered/Not Resolved]

NARRATIVE: CASE EVENT DATE: 20200821
